FAERS Safety Report 5262103-1 (Version None)
Quarter: 2007Q1

REPORT INFORMATION
  Report Type: 
  Country: None (occurrence: None)
  Receive Date: 20070311
  Receipt Date: 20070228
  Transmission Date: 20070707
  Serious: No
  Sender: FDA-Public Use
  Company Number: 2006UW08337

PATIENT
  Sex: Male
  Weight: 75 kg

DRUGS (5)
  1. SEROQUEL [Suspect]
     Indication: BIPOLAR DISORDER
     Route: 048
     Dates: start: 20020101, end: 20030101
  2. SEROQUEL [Suspect]
     Indication: DEPRESSION
     Route: 048
     Dates: start: 20020101, end: 20030101
  3. ABILIFY [Concomitant]
     Route: 048
     Dates: start: 20050101
  4. RISPERDAL [Concomitant]
     Dates: start: 20020101, end: 20030101
  5. ZYPREXA [Concomitant]
     Dates: start: 20010101, end: 20020101

REACTIONS (1)
  - DIABETES MELLITUS [None]
